FAERS Safety Report 5283958-0 (Version None)
Quarter: 2007Q2

REPORT INFORMATION
  Report Type: 
  Country: None (occurrence: None)
  Receive Date: 20070402
  Receipt Date: 20070320
  Transmission Date: 20071010
  Serious: Yes (Hospitalization, Other)
  Sender: FDA-Public Use
  Company Number: US-PFIZER INC-2005130952

PATIENT
  Sex: Male
  Weight: 120.2 kg

DRUGS (15)
  1. BEXTRA [Suspect]
     Indication: ARTHRITIS
     Route: 048
     Dates: start: 20040301, end: 20041129
  2. CELEBREX [Suspect]
     Indication: ARTHRITIS
     Dates: start: 20040902
  3. DIAZEPAM [Concomitant]
     Indication: DEPRESSION
     Dates: start: 20040910, end: 20051108
  4. NEURONTIN [Concomitant]
     Route: 048
     Dates: start: 20040910, end: 20051108
  5. OXYCONTIN [Concomitant]
     Route: 048
  6. AVANDIA [Concomitant]
  7. DIGOXIN [Concomitant]
     Route: 048
  8. LIPITOR [Concomitant]
  9. ALLEGRA D 24 HOUR [Concomitant]
  10. GLYNASE [Concomitant]
     Route: 048
  11. DILTIAZEM [Concomitant]
     Route: 048
  12. FOSINOPRIL SODIUM [Concomitant]
     Route: 048
  13. ASPIRIN [Concomitant]
     Route: 048
  14. VITAMIN B6 [Concomitant]
     Route: 048
  15. GLUCOSAMINE [Concomitant]
     Route: 048

REACTIONS (4)
  - ANXIETY [None]
  - CEREBROVASCULAR ACCIDENT [None]
  - DEPRESSION [None]
  - HEMIPLEGIA [None]
